FAERS Safety Report 7507661-9 (Version None)
Quarter: 2011Q2

REPORT INFORMATION
  Report Type: 
  Country: None (occurrence: None)
  Receive Date: 20110527
  Receipt Date: 20110520
  Transmission Date: 20111010
  Serious: Yes (Hospitalization)
  Sender: FDA-Public Use
  Company Number: US-BIOGENIDEC-2011BI013514

PATIENT
  Age: 66 Year
  Sex: Female

DRUGS (1)
  1. TYSABRI [Suspect]
     Indication: MULTIPLE SCLEROSIS
     Route: 042
     Dates: start: 20100311, end: 20110121

REACTIONS (6)
  - NEPHROLITHIASIS [None]
  - URINARY TRACT INFECTION [None]
  - POOR VENOUS ACCESS [None]
  - RENAL DISORDER [None]
  - INFECTION [None]
  - PYREXIA [None]
